FAERS Safety Report 14545275 (Version 1)
Quarter: 2018Q1

REPORT INFORMATION
  Report Type: Report from Study
  Country: CA (occurrence: CA)
  Receive Date: 20180218
  Receipt Date: 20180218
  Transmission Date: 20180509
  Serious: Yes (Other)
  Sender: FDA-Public Use
  Company Number: CA-BEH-2018087932

PATIENT
  Sex: Female

DRUGS (6)
  1. HIZENTRA [Suspect]
     Active Substance: HUMAN IMMUNOGLOBULIN G
     Dosage: 8 G, QW
     Route: 058
     Dates: start: 20160614
  2. HIZENTRA [Suspect]
     Active Substance: HUMAN IMMUNOGLOBULIN G
     Dosage: UNK
     Route: 058
  3. HIZENTRA [Suspect]
     Active Substance: HUMAN IMMUNOGLOBULIN G
     Indication: PRIMARY IMMUNODEFICIENCY SYNDROME
     Dosage: 8 G, QOW
     Route: 058
  4. CELEXA                             /01400501/ [Concomitant]
     Active Substance: CELECOXIB
  5. MORPHINE [Concomitant]
     Active Substance: MORPHINE
     Indication: PAIN IN EXTREMITY
  6. CODEINE [Concomitant]
     Active Substance: CODEINE
     Dosage: UNK, PRN
     Route: 065

REACTIONS (4)
  - Influenza [Unknown]
  - Weight decreased [Unknown]
  - Pulmonary granuloma [Unknown]
  - Nasopharyngitis [Unknown]
